FAERS Safety Report 6106126-9 (Version None)
Quarter: 2009Q1

REPORT INFORMATION
  Report Type: 
  Country: None (occurrence: None)
  Receive Date: 20090306
  Receipt Date: 20090304
  Transmission Date: 20090719
  Serious: Yes (Death, Other)
  Sender: FDA-Public Use
  Company Number: PHHY2009ZA07836

PATIENT
  Age: 65 Year
  Sex: Female

DRUGS (3)
  1. FEMARA [Suspect]
     Indication: BREAST CANCER
     Dosage: 2.5 MG, FOR 4 YEARS
  2. FEMARA [Suspect]
     Indication: DISEASE PROGRESSION
  3. CHEMOTHERAPEUTICS NOS [Concomitant]

REACTIONS (3)
  - BREAST CANCER RECURRENT [None]
  - DEATH [None]
  - MALIGNANT NEOPLASM PROGRESSION [None]
